FAERS Safety Report 20674777 (Version 3)
Quarter: 2023Q1

REPORT INFORMATION
  Report Type: Spontaneous
  Country: US (occurrence: US)
  Receive Date: 20220405
  Receipt Date: 20230323
  Transmission Date: 20230418
  Serious: Yes (Other)
  Sender: FDA-Public Use
  Company Number: US-PFIZER INC-202200500773

PATIENT
  Age: 42 Year
  Sex: Female

DRUGS (2)
  1. ADENOSINE PHOSPHATE [Suspect]
     Active Substance: ADENOSINE PHOSPHATE
     Indication: Atrial tachycardia
     Dosage: UNK
  2. LOPRESSOR [Suspect]
     Active Substance: METOPROLOL TARTRATE
     Indication: Atrial tachycardia
     Dosage: UNK

REACTIONS (2)
  - Haemodynamic instability [Recovering/Resolving]
  - Off label use [Unknown]
